FAERS Safety Report 14755827 (Version 1)
Quarter: 2018Q2

REPORT INFORMATION
  Report Type: Spontaneous
  Country: GB (occurrence: GB)
  Receive Date: 20180413
  Receipt Date: 20180413
  Transmission Date: 20180711
  Serious: Yes (Death, Hospitalization)
  Sender: FDA-Public Use
  Company Number: GB-ROCHE-2103193

PATIENT
  Sex: Female

DRUGS (1)
  1. ROACTEMRA [Suspect]
     Active Substance: TOCILIZUMAB
     Indication: PULMONARY ARTERIAL HYPERTENSION
     Route: 065

REACTIONS (7)
  - Pulmonary hypertension [Fatal]
  - Oedema peripheral [Unknown]
  - Intentional product use issue [Fatal]
  - Meningitis listeria [Fatal]
  - Sjogren^s syndrome [Fatal]
  - Pneumonia [Fatal]
  - Off label use [Unknown]
